FAERS Safety Report 9704094 (Version 1)
Quarter: 2013Q4

REPORT INFORMATION
  Report Type: Spontaneous
  Country: US (occurrence: US)
  Receive Date: 20131122
  Receipt Date: 20131122
  Transmission Date: 20140711
  Serious: No
  Sender: FDA-Public Use
  Company Number: US-GLAXOSMITHKLINE-A0997524A

PATIENT
  Age: 55 Year
  Sex: Male

DRUGS (6)
  1. WELLBUTRIN SR [Suspect]
     Indication: DEPRESSION
     Dosage: 100MG PER DAY
     Route: 048
     Dates: start: 2009
  2. WELLBUTRIN [Suspect]
     Route: 048
  3. WELLBUTRIN [Suspect]
     Dosage: 150MG PER DAY
     Route: 048
  4. QUALIPEN [Concomitant]
  5. DEPAKOTE [Concomitant]
  6. LOSARTAN [Concomitant]

REACTIONS (6)
  - Drug ineffective [Unknown]
  - Anxiety [Unknown]
  - Feeling jittery [Unknown]
  - Hyperaesthesia [Unknown]
  - Disturbance in attention [Unknown]
  - Balance disorder [Unknown]
